FAERS Safety Report 16209934 (Version 5)
Quarter: 2019Q4

REPORT INFORMATION
  Report Type: Report from Study
  Country: US (occurrence: US)
  Receive Date: 20190417
  Receipt Date: 20191218
  Transmission Date: 20200122
  Serious: Yes (Other)
  Sender: FDA-Public Use
  Company Number: PHEH2019US016659

PATIENT
  Age: 44 Year
  Sex: Female

DRUGS (2)
  1. GILENYA [Suspect]
     Active Substance: FINGOLIMOD HYDROCHLORIDE
     Indication: MULTIPLE SCLEROSIS
     Dosage: 0.5 MG, QD
     Route: 048
     Dates: start: 20190412
  2. GILENYA [Suspect]
     Active Substance: FINGOLIMOD HYDROCHLORIDE
     Indication: RELAPSING MULTIPLE SCLEROSIS

REACTIONS (10)
  - Musculoskeletal pain [Unknown]
  - Dizziness [Recovering/Resolving]
  - Multiple sclerosis relapse [Unknown]
  - Nausea [Recovering/Resolving]
  - Limb discomfort [Unknown]
  - Somnolence [Recovering/Resolving]
  - Memory impairment [Unknown]
  - Visual impairment [Unknown]
  - Lymphocyte count decreased [Unknown]
  - Liver function test increased [Unknown]

NARRATIVE: CASE EVENT DATE: 20190412
